FAERS Safety Report 8578526-9 (Version None)
Quarter: 2012Q3

REPORT INFORMATION
  Report Type: 
  Country: None (occurrence: None)
  Receive Date: 20120726
  Receipt Date: 20120716
  Transmission Date: 20120928
  Serious: Yes (Other)
  Sender: FDA-Public Use
  Company Number: 2012P1051005

PATIENT
  Age: 5 Year

DRUGS (1)
  1. CITALOPRAM HYDROBROMIDE [Suspect]
     Dosage: 10 MG

REACTIONS (2)
  - DRUG DISPENSING ERROR [None]
  - CONVULSION [None]
